FAERS Safety Report 16733314 (Version 1)
Quarter: 2019Q3

REPORT INFORMATION
  Report Type: Spontaneous
  Country: RS (occurrence: RS)
  Receive Date: 20190823
  Receipt Date: 20190823
  Transmission Date: 20191005
  Serious: Yes (Hospitalization, Other)
  Sender: FDA-Public Use
  Company Number: RS-TEVA-2019-RS-1098450

PATIENT
  Age: 63 Year
  Sex: Female

DRUGS (6)
  1. ONDASAN [Concomitant]
     Active Substance: ONDANSETRON HYDROCHLORIDE
     Route: 065
  2. ONDASAN [Concomitant]
     Active Substance: ONDANSETRON HYDROCHLORIDE
     Indication: PREMEDICATION
     Route: 042
  3. ALLERGOSAN [Concomitant]
     Indication: PREMEDICATION
     Route: 042
  4. RANITIDIN [Concomitant]
     Active Substance: RANITIDINE HYDROCHLORIDE
     Indication: PREMEDICATION
     Route: 042
  5. DEXASON [Concomitant]
     Active Substance: DEXAMETHASONE
     Indication: PREMEDICATION
     Route: 042
  6. SINDAXEL [Suspect]
     Active Substance: PACLITAXEL
     Indication: LUNG NEOPLASM MALIGNANT
     Route: 042
     Dates: start: 20190808, end: 20190808

REACTIONS (5)
  - Swelling [Recovered/Resolved]
  - Nausea [Recovered/Resolved]
  - Choking [Recovered/Resolved]
  - Visual impairment [Recovered/Resolved]
  - Hypotension [Recovered/Resolved]

NARRATIVE: CASE EVENT DATE: 20190808
